FAERS Safety Report 17563336 (Version 4)
Quarter: 2020Q2

REPORT INFORMATION
  Report Type: Report from Study
  Country: NL (occurrence: NL)
  Receive Date: 20200319
  Receipt Date: 20200505
  Transmission Date: 20200713
  Serious: Yes (Hospitalization)
  Sender: FDA-Public Use
  Company Number: NL-VERTEX PHARMACEUTICALS-2019-010618

PATIENT
  Age: 52 Year
  Sex: Female
  Weight: 71 kg

DRUGS (21)
  1. PARACETAMOL [Concomitant]
     Active Substance: ACETAMINOPHEN
     Indication: PAIN
     Dosage: 500 MG, PRN
  2. TEMAZEPAM. [Concomitant]
     Active Substance: TEMAZEPAM
     Indication: SLEEP DISORDER
     Dosage: 10 MG, QD
  3. CALCIUM + VITAMIN D [CALCIUM CARBONATE;COLECALCIFEROL] [Concomitant]
     Active Substance: CALCIUM CARBONATE\CHOLECALCIFEROL
     Indication: OSTEOPOROSIS
     Dosage: 1000 MG, QD
  4. AZTREONAM. [Concomitant]
     Active Substance: AZTREONAM
     Indication: BACTERIAL DISEASE CARRIER
     Dosage: 75 MG, BID
  5. TIOTROPIUM [Concomitant]
     Active Substance: TIOTROPIUM
     Indication: PULMONARY CONGESTION
     Dosage: 5 MICROGRAM, QD
  6. PANCREATIN [Concomitant]
     Active Substance: PANCRELIPASE
     Indication: NUTRITIONAL SUPPLEMENTATION
     Dosage: UNK, PRN
  7. SALBUTAMOL [Concomitant]
     Active Substance: ALBUTEROL
     Indication: PULMONARY CONGESTION
     Dosage: 200 MICROGRAM, PRN
  8. VX-445/VX-661/VX-770 [Suspect]
     Active Substance: ELEXACAFTOR\IVACAFTOR\TEZACAFTOR
     Indication: CYSTIC FIBROSIS
     Dosage: UNK
     Route: 048
     Dates: start: 20190328
  9. ADEK [Concomitant]
     Indication: PANCREATIC FAILURE
     Dosage: 300 MG, QD
  10. PERINDOPRIL [Concomitant]
     Active Substance: PERINDOPRIL
     Indication: HYPERTENSION
     Dosage: 4 MG, BID
  11. METOPROLOL. [Concomitant]
     Active Substance: METOPROLOL
     Indication: HYPERTENSION
     Dosage: 50 MG, QD
  12. FLUTICASONE. [Concomitant]
     Active Substance: FLUTICASONE
     Indication: SINUS DISORDER
     Dosage: 500 MICROGRAM, BID
     Route: 048
  13. INSULIN LISPRO [Concomitant]
     Active Substance: INSULIN LISPRO
     Indication: CYSTIC FIBROSIS RELATED DIABETES
     Dosage: UNK, PRN
  14. PREDNISOLONE [PREDNISOLONE ACETATE] [Concomitant]
     Indication: ADRENAL INSUFFICIENCY
     Dosage: 10 MG, QD
  15. DEXTRAN 70;HYPROMELLOSE [Concomitant]
     Indication: DRY EYE
     Dosage: 1 DROP EVERY 4 HOURS
  16. HYPERTONIC SALINE SOLUTION [Concomitant]
     Active Substance: SODIUM CHLORIDE
     Indication: NASAL CONGESTION
     Dosage: UNK
  17. FLUOXETINE [Concomitant]
     Active Substance: FLUOXETINE HYDROCHLORIDE
     Indication: PANIC DISORDER
     Dosage: 20 MG, TID
  18. AZITHROMYCIN ANHYDROUS. [Concomitant]
     Active Substance: AZITHROMYCIN ANHYDROUS
     Indication: BACTERIAL DISEASE CARRIER
     Dosage: 250 MG, QD
  19. METFORMIN [Concomitant]
     Active Substance: METFORMIN HYDROCHLORIDE
     Indication: CYSTIC FIBROSIS RELATED DIABETES
     Dosage: 500 MG,TID
  20. ESOMEPRAZOLE. [Concomitant]
     Active Substance: ESOMEPRAZOLE MAGNESIUM
     Indication: NUTRITIONAL SUPPLEMENTATION
     Dosage: 40 MG, BID
  21. FLUTICASONE. [Concomitant]
     Active Substance: FLUTICASONE
     Indication: INFLAMMATION
     Dosage: 27,5 MCG, BIB

REACTIONS (2)
  - Infective pulmonary exacerbation of cystic fibrosis [Recovered/Resolved]
  - Pulmonary embolism [Not Recovered/Not Resolved]

NARRATIVE: CASE EVENT DATE: 20191029
